FAERS Safety Report 9262625 (Version 1)
Quarter: 2013Q2

REPORT INFORMATION
  Report Type: Spontaneous
  Country: None (occurrence: None)
  Receive Date: 20130425
  Receipt Date: 20130425
  Transmission Date: 20140414
  Serious: No
  Sender: FDA-Public Use
  Company Number: 2013P1005088

PATIENT
  Age: 76 Year
  Sex: Male

DRUGS (17)
  1. DIGOXIN [Suspect]
  2. ADVAIR [Suspect]
  3. SALBUTAMOL SULPHATE [Suspect]
  4. OMEPRAZOLE [Suspect]
  5. PREDNISOLONE [Suspect]
  6. TAMSULOSIN HCL [Suspect]
  7. THEOPHYLLINE [Suspect]
  8. CIPROFLOXACIN [Suspect]
  9. PROCHLORPERAZINE [Suspect]
  10. POTASSIUM CHLORIDE [Suspect]
  11. FUROSEMIDE [Suspect]
  12. GLIPIZIDE [Suspect]
  13. SUCRALFATE [Suspect]
  14. AMITRIPTYLINE [Suspect]
  15. METOPROLOL TARTRATE [Suspect]
  16. VERAPAMIL [Suspect]
  17. DALIRESP [Suspect]

REACTIONS (3)
  - Dyspnoea [None]
  - Arterial occlusive disease [None]
  - Haemorrhage [None]
